FAERS Safety Report 8059333-2 (Version None)
Quarter: 2012Q1

REPORT INFORMATION
  Report Type: 
  Country: None (occurrence: None)
  Receive Date: 20120112
  Receipt Date: 20120104
  Transmission Date: 20120608
  Serious: Yes (Death)
  Sender: FDA-Public Use
  Company Number: 1000025960

PATIENT

DRUGS (3)
  1. PHENERGAN (PROMETHAZINE) (PROMETHAZINE) [Concomitant]
  2. ONDANSETRON [Concomitant]
  3. LEXAPRO [Suspect]
     Dosage: 30 MG (30 MG, 1 IN 1 D), TRANSPLACENTAL
     Route: 064

REACTIONS (2)
  - DEATH NEONATAL [None]
  - MATERNAL DRUGS AFFECTING FOETUS [None]
